FAERS Safety Report 21315845 (Version 1)
Quarter: 2022Q3

REPORT INFORMATION
  Report Type: Spontaneous
  Country: AT (occurrence: AT)
  Receive Date: 20220910
  Receipt Date: 20220910
  Transmission Date: 20221026
  Serious: Yes (Death, Other)
  Sender: FDA-Public Use
  Company Number: AT-AMGEN-AUTSP2022147889

PATIENT

DRUGS (3)
  1. LUMAKRAS [Suspect]
     Active Substance: SOTORASIB
     Indication: Colorectal cancer
     Dosage: 960 MILLIGRAM, QD
     Route: 065
     Dates: start: 20220711
  2. LUMAKRAS [Suspect]
     Active Substance: SOTORASIB
     Indication: K-ras gene mutation
  3. LUMAKRAS [Suspect]
     Active Substance: SOTORASIB
     Indication: Off label use

REACTIONS (2)
  - Colorectal cancer [Fatal]
  - Off label use [Unknown]

NARRATIVE: CASE EVENT DATE: 20220711
